FAERS Safety Report 5049224-3 (Version None)
Quarter: 2006Q3

REPORT INFORMATION
  Report Type: 
  Country: None (occurrence: None)
  Receive Date: 20060706
  Receipt Date: 20060629
  Transmission Date: 20061208
  Serious: Yes (Death)
  Sender: FDA-Public Use
  Company Number: 2006-144880-NL

PATIENT
  Age: 2 Month
  Sex: Female

DRUGS (2)
  1. DANAPAROID SODIUM [Suspect]
     Indication: SURGERY
  2. HEPARIN [Concomitant]

REACTIONS (1)
  - OPERATIVE HAEMORRHAGE [None]
